FAERS Safety Report 12203651 (Version 21)
Quarter: 2018Q1

REPORT INFORMATION
  Report Type: Spontaneous
  Country: CA (occurrence: CA)
  Receive Date: 20160323
  Receipt Date: 20180129
  Transmission Date: 20180508
  Serious: Yes (Other)
  Sender: FDA-Public Use
  Company Number: CA-009507513-1510CAN002053

PATIENT
  Age: 58 Year
  Sex: Female
  Weight: 69.5 kg

DRUGS (8)
  1. KEYTRUDA [Suspect]
     Active Substance: PEMBROLIZUMAB
     Dosage: STRENGTH: 2 MG/KG, 152 MG, Q3W
     Route: 042
  2. KEYTRUDA [Suspect]
     Active Substance: PEMBROLIZUMAB
     Dosage: STRENGTH: 2 MG/KG, 142 MG, Q3W
     Route: 042
     Dates: start: 2017
  3. KEYTRUDA [Suspect]
     Active Substance: PEMBROLIZUMAB
     Dosage: STRENGTH: 2 MG/KG, 142 MG, Q3W
     Route: 042
     Dates: start: 20150619, end: 20171019
  4. KEYTRUDA [Suspect]
     Active Substance: PEMBROLIZUMAB
     Dosage: STRENGTH: 2 MG/KG, 142 MG, Q3W
     Route: 042
     Dates: start: 2017, end: 2017
  5. KEYTRUDA [Suspect]
     Active Substance: PEMBROLIZUMAB
     Dosage: STRENGTH: 2 MG/KG, 142 MG, Q3W
     Route: 042
     Dates: start: 20171208
  6. KEYTRUDA [Suspect]
     Active Substance: PEMBROLIZUMAB
     Dosage: STRENGTH: 2 MG/KG, 142 MG, Q3W
     Route: 042
     Dates: start: 20170310, end: 2017
  7. KEYTRUDA [Suspect]
     Active Substance: PEMBROLIZUMAB
     Dosage: STRENGTH: 2 MG/KG, 150 MG, Q3W
     Route: 042
     Dates: start: 20150529
  8. KEYTRUDA [Suspect]
     Active Substance: PEMBROLIZUMAB
     Dosage: STRENGTH: 2 MG/KG, 142 MG, Q3W
     Route: 042
     Dates: start: 20150619, end: 20171019

REACTIONS (33)
  - Weight increased [Unknown]
  - Neck pain [Unknown]
  - Pulse abnormal [Unknown]
  - Blood pressure increased [Recovering/Resolving]
  - Head injury [Unknown]
  - Weight increased [Recovered/Resolved]
  - Arthralgia [Unknown]
  - Heart rate decreased [Unknown]
  - Blood pressure increased [Unknown]
  - Weight decreased [Recovered/Resolved]
  - Arthralgia [Unknown]
  - Fall [Unknown]
  - Blood pressure increased [Unknown]
  - Vomiting [Unknown]
  - Abdominal pain upper [Unknown]
  - Therapy cessation [Unknown]
  - Toxicity to various agents [Unknown]
  - Blood pressure fluctuation [Unknown]
  - Weight decreased [Recovered/Resolved]
  - Weight decreased [Unknown]
  - Blood pressure decreased [Unknown]
  - Viral infection [Unknown]
  - Hepatic lesion [Unknown]
  - Blood pressure abnormal [Unknown]
  - Weight increased [Recovered/Resolved]
  - Gastric disorder [Unknown]
  - Abdominal pain upper [Unknown]
  - Vulval cancer [Unknown]
  - Chest pain [Unknown]
  - Blood pressure decreased [Unknown]
  - Contusion [Unknown]
  - Aspartate aminotransferase increased [Unknown]
  - Blood pressure abnormal [Unknown]

NARRATIVE: CASE EVENT DATE: 2015
